FAERS Safety Report 15743589 (Version 1)
Quarter: 2018Q4

REPORT INFORMATION
  Report Type: Spontaneous
  Country: US (occurrence: US)
  Receive Date: 20181220
  Receipt Date: 20181220
  Transmission Date: 20190205
  Serious: No
  Sender: FDA-Public Use
  Company Number: US-PFIZER INC-2018523128

PATIENT
  Age: 61 Year
  Sex: Female

DRUGS (4)
  1. CELEBREX [Suspect]
     Active Substance: CELECOXIB
     Dosage: 200 MG, UNK
  2. COUMADIN [Interacting]
     Active Substance: WARFARIN SODIUM
     Dosage: 10 MG, UNK
  3. COUMADIN [Interacting]
     Active Substance: WARFARIN SODIUM
     Dosage: 6 MG, UNK
  4. COUMADIN [Interacting]
     Active Substance: WARFARIN SODIUM
     Dosage: 5 MG, UNK

REACTIONS (1)
  - Drug interaction [Unknown]
